FAERS Safety Report 17758932 (Version 8)
Quarter: 2021Q1

REPORT INFORMATION
  Report Type: Report from Study
  Country: US (occurrence: US)
  Receive Date: 20200508
  Receipt Date: 20210113
  Transmission Date: 20210419
  Serious: No
  Sender: FDA-Public Use
  Company Number: NVSC2020US123796

PATIENT
  Sex: Male

DRUGS (4)
  1. FARXIGA [Concomitant]
     Active Substance: DAPAGLIFLOZIN PROPANEDIOL
     Indication: CARDIAC FAILURE CONGESTIVE
     Dosage: UNK
     Route: 065
  2. DIGOXIN. [Concomitant]
     Active Substance: DIGOXIN
     Indication: PRODUCT USED FOR UNKNOWN INDICATION
     Dosage: UNK
     Route: 065
  3. POTASSIUM [Concomitant]
     Active Substance: POTASSIUM
     Indication: PRODUCT USED FOR UNKNOWN INDICATION
     Dosage: UNK
     Route: 065
  4. ENTRESTO [Suspect]
     Active Substance: SACUBITRIL\VALSARTAN
     Indication: CARDIAC FAILURE CONGESTIVE
     Dosage: 200 MG, BID (97/103)
     Route: 065
     Dates: start: 201908

REACTIONS (15)
  - Ejection fraction abnormal [Unknown]
  - Malaise [Unknown]
  - Depression [Unknown]
  - Heart rate irregular [Unknown]
  - Sleep disorder [Unknown]
  - Limb injury [Unknown]
  - Anxiety [Unknown]
  - Fatigue [Unknown]
  - Weight increased [Unknown]
  - Increased appetite [Unknown]
  - Ventricular extrasystoles [Unknown]
  - Drug ineffective [Not Recovered/Not Resolved]
  - Exostosis [Unknown]
  - Device power source issue [Recovering/Resolving]
  - Appetite disorder [Unknown]
